FAERS Safety Report 4371165-5 (Version None)
Quarter: 2004Q2

REPORT INFORMATION
  Report Type: 
  Country: None (occurrence: None)
  Receive Date: 20040604
  Receipt Date: 20031114
  Transmission Date: 20050107
  Serious: Yes (Hospitalization)
  Sender: FDA-Public Use
  Company Number: GB-ROCHE-351801

PATIENT
  Age: 47 Year
  Sex: Male
  Weight: 77.5 kg

DRUGS (19)
  1. DACLIZUMAB [Suspect]
     Route: 042
     Dates: start: 20031104, end: 20031104
  2. DACLIZUMAB [Suspect]
     Route: 042
     Dates: start: 20031118, end: 20031118
  3. MYCOPHENOLATE MOFETIL [Suspect]
     Route: 048
     Dates: start: 20031105
  4. SIROLIMUS (AS COMPARATOR) [Suspect]
     Route: 048
     Dates: start: 20031105
  5. PREDNISOLONE [Suspect]
     Route: 048
     Dates: start: 20031108
  6. TACROLIMUS [Suspect]
     Route: 065
  7. CO-TRIMOXAZOLE [Concomitant]
     Route: 048
     Dates: start: 20031105
  8. ATORVASTATIN CALCIUM [Concomitant]
     Route: 048
  9. NIFEDIPINE [Concomitant]
     Route: 048
  10. ATENOLOL [Concomitant]
     Route: 048
  11. LANSOPRAZOLE [Concomitant]
     Route: 048
     Dates: start: 20031105
  12. ASPIRIN [Concomitant]
     Route: 048
     Dates: start: 20031106
  13. SENNA [Concomitant]
     Route: 048
  14. FOLIC ACID [Concomitant]
     Route: 048
  15. ARANESP [Concomitant]
     Route: 058
  16. CO PROXAMOL [Concomitant]
  17. LACTULOSE [Concomitant]
  18. FLUCLOXACILLIN [Concomitant]
     Route: 048
  19. GANCICLOVIR [Concomitant]
     Route: 048
     Dates: start: 20031107

REACTIONS (10)
  - BLOOD CREATININE INCREASED [None]
  - DIARRHOEA [None]
  - GRAFT COMPLICATION [None]
  - INFECTION [None]
  - KIDNEY TRANSPLANT REJECTION [None]
  - MALAISE [None]
  - TUBULOINTERSTITIAL NEPHRITIS [None]
  - WOUND DEHISCENCE [None]
  - WOUND INFECTION STAPHYLOCOCCAL [None]
  - WOUND SECRETION [None]
